FAERS Safety Report 13620451 (Version 1)
Quarter: 2017Q2

REPORT INFORMATION
  Report Type: Report from Study
  Country: MX (occurrence: MX)
  Receive Date: 20170607
  Receipt Date: 20170607
  Transmission Date: 20170830
  Serious: Yes (Death, Hospitalization, Other)
  Sender: FDA-Public Use
  Company Number: MX-BRISTOL-MYERS SQUIBB COMPANY-BMS-2017-049199

PATIENT
  Age: 25 Year
  Sex: Female

DRUGS (1)
  1. NIVOLUMAB [Suspect]
     Active Substance: NIVOLUMAB
     Indication: PRODUCT USED FOR UNKNOWN INDICATION
     Dosage: 156 MG, Q2WK
     Route: 042
     Dates: start: 20170118

REACTIONS (4)
  - Malignant neoplasm progression [Unknown]
  - General physical health deterioration [Unknown]
  - Anaemia [Fatal]
  - Transfusion [Unknown]

NARRATIVE: CASE EVENT DATE: 20170301
